FAERS Safety Report 10635246 (Version 10)
Quarter: 2015Q4

REPORT INFORMATION
  Report Type: Report from Study
  Country: CA (occurrence: CA)
  Receive Date: 20141205
  Receipt Date: 20151202
  Transmission Date: 20160304
  Serious: Yes (Hospitalization)
  Sender: FDA-Public Use
  Company Number: CA-ABBVIE-14K-028-1263853-00

PATIENT
  Age: 15 Year
  Sex: Female

DRUGS (8)
  1. HUMIRA [Suspect]
     Active Substance: ADALIMUMAB
     Route: 058
     Dates: start: 2014, end: 2014
  2. HUMIRA [Suspect]
     Active Substance: ADALIMUMAB
     Route: 058
     Dates: start: 2015, end: 2015
  3. HUMIRA [Suspect]
     Active Substance: ADALIMUMAB
     Dosage: INDUCTION DOSE
     Route: 058
     Dates: start: 20150820, end: 20150820
  4. ENSURE [Concomitant]
     Active Substance: AMINO ACIDS\DEXTROSE\ELECTROLYTES NOS\SOYBEAN OIL\VITAMINS
     Indication: PRODUCT USED FOR UNKNOWN INDICATION
  5. HUMIRA [Suspect]
     Active Substance: ADALIMUMAB
     Dosage: RE-INDUCTION DOSE
     Route: 058
     Dates: start: 20141008, end: 20141008
  6. HUMIRA [Suspect]
     Active Substance: ADALIMUMAB
     Dosage: SECOND RE-INDUCTION DOSE
     Route: 058
     Dates: start: 20150903, end: 20150903
  7. HUMIRA [Suspect]
     Active Substance: ADALIMUMAB
     Indication: CROHN^S DISEASE
     Route: 058
     Dates: start: 20111221, end: 20140924
  8. HUMIRA [Suspect]
     Active Substance: ADALIMUMAB
     Dosage: AT WEEK 2 (SECOND RE-INDUCTION DOSE)
     Route: 058
     Dates: start: 201410, end: 201410

REACTIONS (12)
  - Decreased appetite [Not Recovered/Not Resolved]
  - Infrequent bowel movements [Unknown]
  - General physical health deterioration [Unknown]
  - Infrequent bowel movements [Unknown]
  - Abdominal pain [Not Recovered/Not Resolved]
  - Gastrointestinal inflammation [Not Recovered/Not Resolved]
  - Infrequent bowel movements [Recovering/Resolving]
  - Nausea [Not Recovered/Not Resolved]
  - Pallor [Recovered/Resolved]
  - Abdominal pain [Not Recovered/Not Resolved]
  - Constipation [Not Recovered/Not Resolved]
  - Menstrual disorder [Not Recovered/Not Resolved]

NARRATIVE: CASE EVENT DATE: 2014
